FAERS Safety Report 9181316 (Version 2)
Quarter: 2013Q2

REPORT INFORMATION
  Report Type: Spontaneous
  Country: US (occurrence: None)
  Receive Date: 20120531
  Receipt Date: 20130130
  Transmission Date: 20140414
  Serious: Yes (Hospitalization, Other)
  Sender: FDA-Public Use
  Company Number: US201201007602

PATIENT
  Age: 51 Year
  Sex: Male

DRUGS (7)
  1. BYETTA [Suspect]
     Route: 058
  2. AMARYL (GLIMEPIRIDE) [Concomitant]
  3. COMBIVENT (IPRATROPIUM BROMIDE, SALBUTAMOL SULFATE) [Concomitant]
  4. VICODIN( HYDROCODONE BITARTRATE, PARACETAMOL) [Concomitant]
  5. NASONEX (MOMETASONE FUROATE) [Concomitant]
  6. LYRICA (PREGABALIN) [Concomitant]
  7. LEVITRA (VARDENAFIL HYDROCHLORIDE) [Concomitant]

REACTIONS (1)
  - Pancreatitis acute [None]
